FAERS Safety Report 23367770 (Version 1)
Quarter: 2024Q1

REPORT INFORMATION
  Report Type: Spontaneous
  Country: CN (occurrence: CN)
  Receive Date: 20240104
  Receipt Date: 20240104
  Transmission Date: 20240410
  Serious: Yes (Disabling)
  Sender: FDA-Public Use
  Company Number: CN-SANDOZ-SDZ2023CN073996

PATIENT
  Age: 81 Year
  Sex: Female

DRUGS (1)
  1. VORICONAZOLE [Suspect]
     Active Substance: VORICONAZOLE
     Indication: Infection
     Dosage: 200 MG, Q12H
     Route: 048
     Dates: start: 20231221, end: 20231227

REACTIONS (2)
  - Hallucination [Unknown]
  - Disorganised speech [Unknown]

NARRATIVE: CASE EVENT DATE: 20231227
